FAERS Safety Report 9442786 (Version 1)
Quarter: 2013Q3

REPORT INFORMATION
  Report Type: Spontaneous
  Country: US (occurrence: US)
  Receive Date: 20130806
  Receipt Date: 20130806
  Transmission Date: 20140515
  Serious: No
  Sender: FDA-Public Use
  Company Number: US-ABBOTT-13P-163-1108253-00

PATIENT
  Age: 16 Year
  Sex: Male

DRUGS (1)
  1. DEPAKOTE ER [Suspect]
     Indication: BIPOLAR DISORDER
     Dosage: 500 MG IN AM AND 1000MG AT BEDTIME

REACTIONS (1)
  - Drug level increased [Unknown]
